FAERS Safety Report 5080986-5 (Version None)
Quarter: 2006Q3

REPORT INFORMATION
  Report Type: 
  Country: None (occurrence: None)
  Receive Date: 20060720
  Receipt Date: 20051208
  Transmission Date: 20061208
  Serious: Yes (Other)
  Sender: FDA-Public Use
  Company Number: 2005165945

PATIENT
  Sex: Female
  Weight: 71.2147 kg

DRUGS (1)
  1. CELEBREX [Suspect]
     Indication: ARTHRITIS

REACTIONS (3)
  - BODY HEIGHT DECREASED [None]
  - CATARACT [None]
  - HYPERTENSION [None]
